FAERS Safety Report 10470445 (Version 1)
Quarter: 2014Q3

REPORT INFORMATION
  Report Type: Spontaneous
  Country: US (occurrence: None)
  Receive Date: 20140922
  Receipt Date: 20140922
  Transmission Date: 20150326
  Serious: No
  Sender: FDA-Public Use
  Company Number: None

PATIENT
  Age: 36 Year
  Sex: Female
  Weight: 97.52 kg

DRUGS (2)
  1. FLUOXETINE [Suspect]
     Active Substance: FLUOXETINE\FLUOXETINE HYDROCHLORIDE
     Indication: DEPRESSION
     Dosage: 2 CAPSULES  ONCE DAILY  TAKEN BY MOUTH
     Route: 048
     Dates: start: 20140915, end: 20140920
  2. FLUOXETINE [Suspect]
     Active Substance: FLUOXETINE\FLUOXETINE HYDROCHLORIDE
     Indication: ANXIETY
     Dosage: 2 CAPSULES  ONCE DAILY  TAKEN BY MOUTH
     Route: 048
     Dates: start: 20140915, end: 20140920

REACTIONS (2)
  - Reaction to drug excipients [None]
  - Rash generalised [None]

NARRATIVE: CASE EVENT DATE: 20140918
